FAERS Safety Report 8889513 (Version 1)
Quarter: 2012Q4

REPORT INFORMATION
  Report Type: 
  Country: US (occurrence: US)
  Receive Date: 20121107
  Receipt Date: 20121107
  Transmission Date: 20130627
  Serious: Yes (Other)
  Sender: FDA-Public Use
  Company Number: US-UCBSA-069040

PATIENT
  Age: 41 Year
  Sex: Male

DRUGS (1)
  1. KEPPRA [Suspect]
     Indication: CONVULSION
     Dates: start: 20120801, end: 201209

REACTIONS (1)
  - Post-traumatic epilepsy [Not Recovered/Not Resolved]
